FAERS Safety Report 7416980-6 (Version None)
Quarter: 2011Q2

REPORT INFORMATION
  Report Type: 
  Country: None (occurrence: None)
  Receive Date: 20110412
  Receipt Date: 20110412
  Transmission Date: 20111010
  Serious: Yes (Other)
  Sender: FDA-Public Use
  Company Number: None

PATIENT
  Sex: Male
  Weight: 120.43 kg

DRUGS (1)
  1. GLIMEPIRIDE [Suspect]
     Indication: DIABETES MELLITUS
     Dosage: 4 MG BIO PO
     Route: 048
     Dates: start: 20051111, end: 20070409

REACTIONS (6)
  - SINUSITIS [None]
  - TINNITUS [None]
  - HEADACHE [None]
  - DIZZINESS [None]
  - EAR INFECTION [None]
  - TREMOR [None]
